FAERS Safety Report 8544698-5 (Version None)
Quarter: 2012Q3

REPORT INFORMATION
  Report Type: 
  Country: None (occurrence: None)
  Receive Date: 20120727
  Receipt Date: 20120724
  Transmission Date: 20120928
  Serious: Yes (Hospitalization)
  Sender: FDA-Public Use
  Company Number: ES-GLAXOSMITHKLINE-Z0015155A

PATIENT
  Sex: Female
  Weight: 43.5 kg

DRUGS (6)
  1. LEVOFLOXACIN [Concomitant]
     Indication: INFECTION PROPHYLAXIS
     Dosage: 500MG PER DAY
     Route: 048
     Dates: start: 20120422, end: 20120426
  2. FLUDARABINE PHOSPHATE [Suspect]
     Indication: CHRONIC LYMPHOCYTIC LEUKAEMIA
     Route: 042
     Dates: start: 20111121
  3. CYCLOPHOSPHAMIDE [Suspect]
     Indication: CHRONIC LYMPHOCYTIC LEUKAEMIA
     Route: 042
     Dates: start: 20111121
  4. OFATUMUMAB [Suspect]
     Indication: CHRONIC LYMPHOCYTIC LEUKAEMIA
     Route: 042
     Dates: start: 20111121
  5. TAZOBACTAM [Concomitant]
     Indication: INFECTION PROPHYLAXIS
     Dosage: 500MG THREE TIMES PER DAY
     Route: 042
     Dates: start: 20120416, end: 20120421
  6. PIPERACILINA [Concomitant]
     Indication: INFECTION PROPHYLAXIS
     Dosage: 4G THREE TIMES PER DAY
     Route: 042
     Dates: start: 20120416, end: 20120421

REACTIONS (1)
  - FEBRILE NEUTROPENIA [None]
